FAERS Safety Report 9551321 (Version 1)
Quarter: 2013Q2

REPORT INFORMATION
  Report Type: Spontaneous
  Country: US (occurrence: None)
  Receive Date: 20130627
  Receipt Date: 20130627
  Transmission Date: 20140414
  Serious: No
  Sender: FDA-Public Use
  Company Number: 1000045339

PATIENT
  Age: 57 Year
  Sex: Female

DRUGS (10)
  1. LINZESS (LINACLOTIDE) (290 MICROGRAM, CAPSULES) [Suspect]
     Indication: IRRITABLE BOWEL SYNDROME
     Route: 048
     Dates: start: 20121222, end: 20130329
  2. BENTYL (DICYCLOVERINE HYDROCHLORIDE) [Concomitant]
  3. AMITIZA (LUBIPROSTONE) [Concomitant]
  4. COLCHICINE (COLCHICINE) [Concomitant]
  5. SEROQUEL (QUETIAPINE FUMARATE0 [Concomitant]
  6. TOPAMAX (TOPIRAMATE) [Concomitant]
  7. DEXILANT (DEXLANSOPRAZOLE) [Concomitant]
  8. PREVACID (LANSOPRAZOLE) [Concomitant]
  9. ZOLPIDEM (ZOLPIDEM) [Concomitant]
  10. NAPROXEN (NAPROXEN) [Concomitant]

REACTIONS (3)
  - Abdominal pain [None]
  - Abdominal distension [None]
  - Weight increased [None]
